FAERS Safety Report 7830624-0 (Version None)
Quarter: 2011Q4

REPORT INFORMATION
  Report Type: 
  Country: None (occurrence: None)
  Receive Date: 20111021
  Receipt Date: 20111017
  Transmission Date: 20120403
  Serious: Yes (Other)
  Sender: FDA-Public Use
  Company Number: FR-ABBOTT-11P-056-0865864-00

PATIENT
  Age: 40 Year
  Sex: Female

DRUGS (1)
  1. DEPAKOTE [Suspect]
     Indication: SCHIZOPHRENIA
     Route: 048
     Dates: start: 20030101, end: 20111012

REACTIONS (4)
  - ENCEPHALOPATHY [None]
  - DRUG LEVEL DECREASED [None]
  - CONFUSIONAL STATE [None]
  - DISORIENTATION [None]
